FAERS Safety Report 12411976 (Version 1)
Quarter: 2016Q2

REPORT INFORMATION
  Report Type: Spontaneous
  Country: US (occurrence: US)
  Receive Date: 20160527
  Receipt Date: 20160527
  Transmission Date: 20160815
  Serious: Yes (Other)
  Sender: FDA-Public Use
  Company Number: US-SHIONOGI, INC-2016000567

PATIENT
  Sex: Male

DRUGS (3)
  1. SULAR [Suspect]
     Active Substance: NISOLDIPINE
     Dosage: 34 MG, DAILY
     Route: 065
     Dates: start: 2015
  2. TOPROL XL [Concomitant]
     Active Substance: METOPROLOL SUCCINATE
     Indication: PRODUCT USED FOR UNKNOWN INDICATION
     Dosage: 34 MG, UNK
     Route: 065
  3. SULAR [Suspect]
     Active Substance: NISOLDIPINE
     Indication: PRODUCT USED FOR UNKNOWN INDICATION
     Dosage: 17 MG, UNK
     Route: 065
     Dates: end: 2015

REACTIONS (2)
  - Oedema peripheral [Not Recovered/Not Resolved]
  - Chronic kidney disease [Not Recovered/Not Resolved]

NARRATIVE: CASE EVENT DATE: 2015
